FAERS Safety Report 4742169-5 (Version None)
Quarter: 2005Q3

REPORT INFORMATION
  Report Type: 
  Country: None (occurrence: None)
  Receive Date: 20050811
  Receipt Date: 20050308
  Transmission Date: 20060218
  Serious: No
  Sender: FDA-Public Use
  Company Number: US-GLAXOSMITHKLINE-A0548848A

PATIENT
  Age: 63 Year
  Sex: Female

DRUGS (4)
  1. PAXIL CR [Suspect]
     Indication: DEPRESSION
     Dosage: 12.5MG PER DAY
     Route: 048
     Dates: start: 20050216, end: 20050223
  2. LABETALOL [Concomitant]
  3. DYAZIDE [Concomitant]
  4. CATAPRES-TTS-1 [Concomitant]

REACTIONS (10)
  - ASTHENIA [None]
  - BLOOD PRESSURE DECREASED [None]
  - DECREASED APPETITE [None]
  - DIZZINESS [None]
  - EAR PAIN [None]
  - FEELING OF RELAXATION [None]
  - INSOMNIA [None]
  - PHARYNGOLARYNGEAL PAIN [None]
  - SINUS HEADACHE [None]
  - WEIGHT DECREASED [None]
